FAERS Safety Report 18176977 (Version 1)
Quarter: 2020Q3

REPORT INFORMATION
  Report Type: Report from Study
  Country: None (occurrence: CO)
  Receive Date: 20200821
  Receipt Date: 20200821
  Transmission Date: 20201103
  Serious: Yes (Death, Other)
  Sender: FDA-Public Use
  Company Number: CO-ABBVIE-20K-036-3533866-00

PATIENT
  Age: 85 Year
  Sex: Male
  Weight: 54 kg

DRUGS (3)
  1. ZEMPLAR [Suspect]
     Active Substance: PARICALCITOL
     Indication: HYPERPARATHYROIDISM SECONDARY
     Route: 048
     Dates: start: 20171009, end: 20200711
  2. FUROSEMIDE. [Concomitant]
     Active Substance: FUROSEMIDE
     Indication: NEPHROPATHY
     Dosage: 1 AT DAY, 1 AT NIGHT
     Route: 048
     Dates: end: 20200812
  3. ZEMPLAR [Suspect]
     Active Substance: PARICALCITOL
     Indication: CHRONIC KIDNEY DISEASE

REACTIONS (6)
  - Cardio-respiratory arrest [Fatal]
  - Renal disorder [Fatal]
  - Myocardial infarction [Fatal]
  - Fluid retention [Not Recovered/Not Resolved]
  - Nephropathy [Not Recovered/Not Resolved]
  - Urinary retention [Not Recovered/Not Resolved]

NARRATIVE: CASE EVENT DATE: 202007
